FAERS Safety Report 18973331 (Version 1)
Quarter: 2021Q1

REPORT INFORMATION
  Report Type: Spontaneous
  Country: US (occurrence: US)
  Receive Date: 20210305
  Receipt Date: 20210305
  Transmission Date: 20210420
  Serious: Yes (Hospitalization, Other)
  Sender: FDA-Public Use
  Company Number: None

PATIENT
  Age: 35 Year
  Sex: Male
  Weight: 60.75 kg

DRUGS (2)
  1. PRIVIGEN [Suspect]
     Active Substance: HUMAN IMMUNOGLOBULIN G
     Indication: IMMUNODEFICIENCY COMMON VARIABLE
     Dosage: ?          OTHER FREQUENCY:EVERY TWO WEEKS;?
     Route: 042
  2. DUPILUMAB [Concomitant]
     Active Substance: DUPILUMAB
     Dates: end: 20210303

REACTIONS (2)
  - Pulmonary embolism [None]
  - Infarction [None]

NARRATIVE: CASE EVENT DATE: 20210302
